FAERS Safety Report 6419198-9 (Version None)
Quarter: 2009Q4

REPORT INFORMATION
  Report Type: 
  Country: None (occurrence: None)
  Receive Date: 20091028
  Receipt Date: 20091028
  Transmission Date: 20100525
  Serious: Yes (Death)
  Sender: FDA-Public Use
  Company Number: None

PATIENT
  Sex: Male
  Weight: 62.5964 kg

DRUGS (10)
  1. SORAFENIB 200MG BAYER HEALTHCARE PHARMACEUTICALS [Suspect]
     Indication: NEOPLASM
     Dosage: 600MG BID PO
     Route: 048
     Dates: start: 20090921, end: 20091025
  2. POTASSIUM CHLORIDE [Concomitant]
  3. SODIUM PHOSPHATE [Concomitant]
  4. -K- PHOS NEUTRAL- [Concomitant]
  5. DIFLUCAN [Concomitant]
  6. SENOKOT [Concomitant]
  7. DILAUDID [Concomitant]
  8. MS CONTIN [Concomitant]
  9. PROCHLOROPERAZINE -COMPAZINE- [Concomitant]
  10. DECADRON [Concomitant]

REACTIONS (9)
  - CHEST PAIN [None]
  - HYPERHIDROSIS [None]
  - OXYGEN SATURATION DECREASED [None]
  - PULSE ABSENT [None]
  - PUPIL FIXED [None]
  - RESPIRATORY ARREST [None]
  - RESPIRATORY DISTRESS [None]
  - RESPIRATORY RATE INCREASED [None]
  - UNRESPONSIVE TO STIMULI [None]
